FAERS Safety Report 10219526 (Version 2)
Quarter: 2015Q1

REPORT INFORMATION
  Report Type: Spontaneous
  Country: US (occurrence: US)
  Receive Date: 20140605
  Receipt Date: 20150120
  Transmission Date: 20150720
  Serious: Yes (Death, Hospitalization, Other)
  Sender: FDA-Public Use
  Company Number: US-GLAXOSMITHKLINE-A1074946A

PATIENT
  Age: 82 Year
  Sex: Male

DRUGS (6)
  1. TRAMADOL [Concomitant]
     Active Substance: TRAMADOL
  2. OMEPRAZOLE. [Concomitant]
     Active Substance: OMEPRAZOLE
  3. JALYN [Concomitant]
     Active Substance: DUTASTERIDE\TAMSULOSIN HYDROCHLORIDE
  4. ADVAIR HFA [Suspect]
     Active Substance: FLUTICASONE PROPIONATE\SALMETEROL XINAFOATE
     Indication: CHRONIC OBSTRUCTIVE PULMONARY DISEASE
     Dosage: 1 PUFF(S), BID
     Route: 055
     Dates: start: 2010
  5. CLONAZEPAM. [Concomitant]
     Active Substance: CLONAZEPAM
  6. SPIRIVA [Concomitant]
     Active Substance: TIOTROPIUM BROMIDE MONOHYDRATE

REACTIONS (3)
  - Non-Hodgkin^s lymphoma [Fatal]
  - Cholecystectomy [Unknown]
  - Hernia [Unknown]

NARRATIVE: CASE EVENT DATE: 20131030
